FAERS Safety Report 20064200 (Version 3)
Quarter: 2022Q2

REPORT INFORMATION
  Report Type: Spontaneous
  Country: US (occurrence: US)
  Receive Date: 20211112
  Receipt Date: 20220502
  Transmission Date: 20220721
  Serious: Yes (Other)
  Sender: FDA-Public Use
  Company Number: US-PFIZER INC-202101566573

PATIENT
  Age: 52 Year
  Sex: Female

DRUGS (40)
  1. PROTONIX [Suspect]
     Active Substance: PANTOPRAZOLE SODIUM
     Indication: Gastrooesophageal reflux disease
     Dosage: 40 MG, 1X/DAY
     Dates: start: 2001, end: 2018
  2. NEXIUM [Suspect]
     Active Substance: ESOMEPRAZOLE MAGNESIUM
     Indication: Gastrooesophageal reflux disease
     Dosage: UNK
     Dates: start: 2001, end: 2018
  3. NEXIUM [Suspect]
     Active Substance: ESOMEPRAZOLE MAGNESIUM
     Dosage: 40 MG, 1X/DAY
     Dates: start: 2001, end: 201907
  4. NEXIUM 24HR [Suspect]
     Active Substance: ESOMEPRAZOLE MAGNESIUM
     Indication: Gastrooesophageal reflux disease
     Dosage: UNK
     Dates: start: 2001, end: 2018
  5. NEXIUM 24HR [Suspect]
     Active Substance: ESOMEPRAZOLE MAGNESIUM
     Dosage: UNK, DOSAGE AS RECOMMENDED
     Dates: start: 2014, end: 2018
  6. PRILOSEC [Suspect]
     Active Substance: OMEPRAZOLE MAGNESIUM
     Indication: Gastrooesophageal reflux disease
     Dosage: 40 MG, 1X/DAY
     Dates: start: 2001, end: 2018
  7. PANTOPRAZOLE [Suspect]
     Active Substance: PANTOPRAZOLE
     Indication: Gastrooesophageal reflux disease
     Dosage: 20 MG, 1X/DAY
     Dates: start: 20160127, end: 2020
  8. PANTOPRAZOLE [Suspect]
     Active Substance: PANTOPRAZOLE
     Dosage: 40 MG, 1X/DAY
     Dates: start: 20160127, end: 2020
  9. OMEPRAZOLE [Suspect]
     Active Substance: OMEPRAZOLE
     Indication: Gastrooesophageal reflux disease
     Dosage: 30 MG, 1X/DAY
     Dates: start: 2015
  10. ESOMEPRAZOLE [Suspect]
     Active Substance: ESOMEPRAZOLE
     Indication: Gastrooesophageal reflux disease
     Dosage: 40 MG, 1X/DAY
     Dates: start: 20190630
  11. AMOXICILLIN [Concomitant]
     Active Substance: AMOXICILLIN
     Dosage: 500 MG
     Dates: start: 20150117
  12. AMOXICILLIN [Concomitant]
     Active Substance: AMOXICILLIN
     Dosage: 500 MG
     Dates: start: 20210420
  13. FUROSEMIDE [Concomitant]
     Active Substance: FUROSEMIDE
     Indication: Fluid retention
     Dosage: 20 MG
     Dates: start: 20130627
  14. FUROSEMIDE [Concomitant]
     Active Substance: FUROSEMIDE
     Dosage: 20 MG
     Dates: start: 20131117
  15. FUROSEMIDE [Concomitant]
     Active Substance: FUROSEMIDE
     Dosage: 20 MG
     Dates: start: 20140407
  16. FUROSEMIDE [Concomitant]
     Active Substance: FUROSEMIDE
     Dosage: 20 MG
     Dates: start: 20140507
  17. FUROSEMIDE [Concomitant]
     Active Substance: FUROSEMIDE
     Dosage: 20 MG
     Dates: start: 20140610
  18. FUROSEMIDE [Concomitant]
     Active Substance: FUROSEMIDE
     Dosage: 20 MG
     Dates: start: 20141003
  19. CLOPIDOGREL [Concomitant]
     Active Substance: CLOPIDOGREL BISULFATE
     Indication: Anticoagulant therapy
     Dosage: 75 MG
     Dates: start: 20130905
  20. CLOPIDOGREL [Concomitant]
     Active Substance: CLOPIDOGREL BISULFATE
     Dosage: 75 MG
     Dates: start: 20131002
  21. CIPROFLOXACIN HYDROCHLORIDE [Concomitant]
     Active Substance: CIPROFLOXACIN HYDROCHLORIDE
     Indication: Infection
     Dosage: 500 MG
     Dates: start: 20140219
  22. ATORVASTATIN [Concomitant]
     Active Substance: ATORVASTATIN
     Indication: Blood cholesterol increased
     Dosage: 20 MG
     Dates: start: 20140706
  23. ATORVASTATIN [Concomitant]
     Active Substance: ATORVASTATIN
     Dosage: 20 MG
     Dates: start: 20140806
  24. ATORVASTATIN [Concomitant]
     Active Substance: ATORVASTATIN
     Dosage: 20 MG
     Dates: start: 20141003
  25. ATORVASTATIN [Concomitant]
     Active Substance: ATORVASTATIN
     Dosage: 20 MG
     Dates: start: 20141201
  26. VITAMIN D [Concomitant]
     Active Substance: VITAMIN D NOS
     Indication: Immune enhancement therapy
     Dosage: UNK
     Dates: start: 2012
  27. IBUPROFEN [Concomitant]
     Active Substance: IBUPROFEN
     Indication: Back pain
     Dosage: UNK, AS NEEDED
     Dates: start: 2011
  28. IBUPROFEN [Concomitant]
     Active Substance: IBUPROFEN
     Indication: Headache
  29. ASPIRIN [Concomitant]
     Active Substance: ASPIRIN
     Indication: Anticoagulant therapy
     Dosage: UNK
     Dates: start: 2016
  30. TYLENOL [Concomitant]
     Active Substance: ACETAMINOPHEN
     Indication: Headache
     Dosage: UNK, AS NEEDED
     Dates: start: 2011
  31. RANITIDINE [Concomitant]
     Active Substance: RANITIDINE
     Dosage: 150 MG
     Dates: start: 20140623
  32. PEPCID [Concomitant]
     Active Substance: FAMOTIDINE
     Dosage: UNK
     Dates: start: 2017
  33. PEPCID COMPLETE OTC [Concomitant]
     Dosage: UNK
     Dates: start: 2017
  34. ZANTAC 150 (RANITIDINE HYDROCHLORIDE) [Concomitant]
     Active Substance: RANITIDINE HYDROCHLORIDE
     Dosage: UNK, DAILY
     Dates: start: 2017
  35. ZANTAC [Concomitant]
     Active Substance: RANITIDINE HYDROCHLORIDE
     Dosage: UNK
     Dates: start: 2017
  36. ZANTAC 150 (RANITIDINE HYDROCHLORIDE) [Concomitant]
     Active Substance: RANITIDINE HYDROCHLORIDE
  37. TUMS [Concomitant]
     Active Substance: CALCIUM CARBONATE
     Indication: Antacid therapy
     Dosage: UNK, DOSAGE AS RECOMMENDED
     Dates: start: 2012, end: 2013
  38. MYLANTA [Concomitant]
     Active Substance: ALUMINUM HYDROXIDE\DIMETHICONE\MAGNESIUM HYDROXIDE
     Indication: Antacid therapy
     Dosage: UNK, DOSAGE AS RECOMMENDED
     Dates: start: 2014, end: 2015
  39. PEPTO BISMOL OTC [Concomitant]
     Indication: Antacid therapy
     Dosage: UNK, DOSAGE AS RECOMMENDED
     Dates: start: 2016, end: 2017
  40. PEPTO BISMOL OTC [Concomitant]
     Dosage: UNK, DOSAGE AS RECOMMENDED
     Dates: start: 2017

REACTIONS (2)
  - Chronic kidney disease [Not Recovered/Not Resolved]
  - Gastrooesophageal reflux disease [Not Recovered/Not Resolved]

NARRATIVE: CASE EVENT DATE: 20160101
